FAERS Safety Report 8177794-5 (Version None)
Quarter: 2012Q1

REPORT INFORMATION
  Report Type: 
  Country: None (occurrence: None)
  Receive Date: 20120301
  Receipt Date: 20120214
  Transmission Date: 20120608
  Serious: Yes (Other)
  Sender: FDA-Public Use
  Company Number: US-ROCHE-1043595

PATIENT
  Sex: Female
  Weight: 50 kg

DRUGS (8)
  1. IBUPROFEN [Concomitant]
     Route: 065
  2. VENTOLIN [Concomitant]
     Route: 065
  3. ALBUTEROL [Concomitant]
     Route: 065
  4. IMITREX [Concomitant]
     Route: 065
  5. OMALIZUMAB [Suspect]
     Indication: ASTHMA
     Dosage: DOSE: 2 INJECTIONS
     Route: 058
     Dates: start: 20111205, end: 20111220
  6. XYZAL [Concomitant]
     Route: 065
  7. FLUOXETINE [Concomitant]
     Route: 065
  8. ZYFLO [Concomitant]
     Route: 065

REACTIONS (3)
  - INFLUENZA [None]
  - PNEUMONIA [None]
  - STREPTOCOCCAL INFECTION [None]
